FAERS Safety Report 5973620-0 (Version None)
Quarter: 2008Q4

REPORT INFORMATION
  Report Type: 
  Country: None (occurrence: None)
  Receive Date: 20081201
  Receipt Date: 20081118
  Transmission Date: 20090506
  Serious: Yes (Other)
  Sender: FDA-Public Use
  Company Number: CA-ELI_LILLY_AND_COMPANY-CA200811004892

PATIENT
  Sex: Female
  Weight: 87 kg

DRUGS (2)
  1. DULOXETINE HYDROCHLORIDE [Suspect]
     Indication: MAJOR DEPRESSION
     Dosage: 60 MG, DAILY (1/D)
     Route: 048
     Dates: start: 20081022, end: 20081118
  2. TRICYCLEN [Concomitant]
     Indication: CONTRACEPTION
     Dates: start: 20070901

REACTIONS (1)
  - RASH PRURITIC [None]
